FAERS Safety Report 19951632 (Version 1)
Quarter: 2021Q4

REPORT INFORMATION
  Report Type: Report from Study
  Country: JP (occurrence: JP)
  Receive Date: 20211013
  Receipt Date: 20211013
  Transmission Date: 20220303
  Serious: Yes (Death, Other)
  Sender: FDA-Public Use
  Company Number: JP-PFIZER INC-202101340380

PATIENT
  Sex: Male

DRUGS (2)
  1. DOCETAXEL [Suspect]
     Active Substance: DOCETAXEL
     Indication: Hormone-refractory prostate cancer
     Dosage: 75 MG/M2, EVERY 3 WEEKS (OVER MORE THAN AN HOUR ON DAY 1)
     Route: 042
  2. DEXAMETHASONE [Suspect]
     Active Substance: DEXAMETHASONE
     Indication: Hormone-refractory prostate cancer
     Dosage: 0.5 MG, 2X/DAY (STARTING ON DAY 1 AND CONTINUING THROUGHOUT THE TREATMENT PERIOD)
     Route: 048

REACTIONS (1)
  - Pneumonia aspiration [Fatal]
